FAERS Safety Report 24687767 (Version 2)
Quarter: 2025Q2

REPORT INFORMATION
  Report Type: Spontaneous
  Country: US (occurrence: US)
  Receive Date: 20241202
  Receipt Date: 20250421
  Transmission Date: 20250716
  Serious: Yes (Other)
  Sender: BRISTOL-MYERS SQUIBB COMPANY
  Company Number: US-BRISTOL-MYERS SQUIBB COMPANY-2024-183760

PATIENT
  Age: 52 Year
  Sex: Male
  Weight: 89.81 kg

DRUGS (25)
  1. REVLIMID [Suspect]
     Active Substance: LENALIDOMIDE
     Indication: Plasma cell myeloma in remission
     Route: 048
  2. ACYCLOVIR [Concomitant]
     Active Substance: ACYCLOVIR
  3. ALLERGY [DIPHENHYDRAMINE HYDROCHLORIDE] [Concomitant]
     Route: 048
  4. AMITRIPTYLINE [Concomitant]
     Active Substance: AMITRIPTYLINE
  5. AMLODIPINE [Concomitant]
     Active Substance: AMLODIPINE BESYLATE
  6. AMOXICILLIN [Concomitant]
     Active Substance: AMOXICILLIN
  7. ASPIRIN [Concomitant]
     Active Substance: ASPIRIN
  8. ATORVASTATIN [Concomitant]
     Active Substance: ATORVASTATIN
  9. C 1000 [Concomitant]
  10. CLINDAMYCIN [Concomitant]
     Active Substance: CLINDAMYCIN
  11. CYCLOBENZAPRINE [Concomitant]
     Active Substance: CYCLOBENZAPRINE
  12. FAMOTIDINE [Concomitant]
     Active Substance: FAMOTIDINE
  13. GLIPIZIDE [Concomitant]
     Active Substance: GLIPIZIDE
  14. ACETAMINOPHEN\HYDROCODONE [Concomitant]
     Active Substance: ACETAMINOPHEN\HYDROCODONE
  15. LOSARTAN [Concomitant]
     Active Substance: LOSARTAN
  16. LYRICA [Concomitant]
     Active Substance: PREGABALIN
  17. ONDANSETRON [Concomitant]
     Active Substance: ONDANSETRON
  18. OZEMPIC [Concomitant]
     Active Substance: SEMAGLUTIDE
  19. PANTOPRAZOLE [Concomitant]
     Active Substance: PANTOPRAZOLE
  20. PROMETHAZINE [Concomitant]
     Active Substance: PROMETHAZINE HYDROCHLORIDE
  21. REQUIP [Concomitant]
     Active Substance: ROPINIROLE HYDROCHLORIDE
  22. VALIUM [Concomitant]
     Active Substance: DIAZEPAM
  23. VITAMIN B12 [Concomitant]
     Active Substance: CYANOCOBALAMIN
  24. CHOLECALCIFEROL [Concomitant]
     Active Substance: CHOLECALCIFEROL
  25. ZOLEDRONIC ACID [Concomitant]
     Active Substance: ZOLEDRONIC ACID

REACTIONS (3)
  - White blood cell count decreased [Unknown]
  - Plasma cell myeloma [Unknown]
  - Full blood count decreased [Unknown]
